FAERS Safety Report 7544779-9 (Version None)
Quarter: 2011Q2

REPORT INFORMATION
  Report Type: 
  Country: None (occurrence: None)
  Receive Date: 20110614
  Receipt Date: 20110124
  Transmission Date: 20111010
  Serious: Yes (Hospitalization, Other)
  Sender: FDA-Public Use
  Company Number: US-BAYER-201030348NA

PATIENT
  Age: 41 Year
  Sex: Female
  Weight: 104.31 kg

DRUGS (4)
  1. PRESTIQUE [Concomitant]
     Indication: DEPRESSION
     Dosage: UNK
     Dates: start: 20080101
  2. YAZ [Suspect]
     Indication: PRODUCT USED FOR UNKNOWN INDICATION
     Dosage: UNK UNK, UNK
     Route: 048
     Dates: start: 20061201, end: 20071001
  3. AXERT [Concomitant]
     Indication: PRODUCT USED FOR UNKNOWN INDICATION
  4. TOPAMAX [Concomitant]
     Indication: PRODUCT USED FOR UNKNOWN INDICATION

REACTIONS (5)
  - PULMONARY EMBOLISM [None]
  - ANXIETY [None]
  - DEPRESSION [None]
  - PAIN [None]
  - ANHEDONIA [None]
